FAERS Safety Report 13039661 (Version 1)
Quarter: 2016Q4

REPORT INFORMATION
  Report Type: Spontaneous
  Country: US (occurrence: US)
  Receive Date: 20161219
  Receipt Date: 20161219
  Transmission Date: 20170207
  Serious: Yes (Hospitalization, Other)
  Sender: FDA-Public Use
  Company Number: PHEH2016US031727

PATIENT
  Age: 56 Year
  Sex: Female

DRUGS (38)
  1. ABARAXIN [Concomitant]
     Dosage: 75 MG/M2, QW2 (CYCLE 4)
     Route: 065
     Dates: start: 20160303
  2. ABARAXIN [Concomitant]
     Dosage: 75 MG/M2, QW2 (CYCLE 6)
     Route: 065
     Dates: start: 20160310
  3. ABARAXIN [Concomitant]
     Dosage: 75 MG/M2, UNK
     Route: 065
     Dates: start: 20161108
  4. INJECTAFER [Concomitant]
     Active Substance: FERRIC CARBOXYMALTOSE
     Dosage: 760 MG, UNK
     Route: 042
     Dates: start: 20160307
  5. CISPLATIN. [Concomitant]
     Active Substance: CISPLATIN
     Dosage: 60 MG/M2, UNK
     Route: 065
     Dates: start: 20161003
  6. PLATINOL [Concomitant]
     Active Substance: CISPLATIN
     Indication: PRODUCT USED FOR UNKNOWN INDICATION
     Route: 065
  7. LOVENOX [Concomitant]
     Active Substance: ENOXAPARIN SODIUM
     Indication: SINUS DISORDER
     Route: 065
  8. CREON [Concomitant]
     Active Substance: PANCRELIPASE AMYLASE\PANCRELIPASE LIPASE\PANCRELIPASE PROTEASE
     Indication: PRODUCT USED FOR UNKNOWN INDICATION
     Dosage: 2400 U, TID
     Route: 065
  9. INJECTAFER [Concomitant]
     Active Substance: FERRIC CARBOXYMALTOSE
     Indication: PRODUCT USED FOR UNKNOWN INDICATION
     Dosage: 760 MG, UNK
     Route: 042
     Dates: start: 20160229
  10. CISPLATIN. [Concomitant]
     Active Substance: CISPLATIN
     Dosage: UNK
     Route: 065
     Dates: start: 20160509
  11. CISPLATIN. [Concomitant]
     Active Substance: CISPLATIN
     Dosage: UNK
     Route: 065
     Dates: start: 20160712
  12. DECADRON [Concomitant]
     Active Substance: DEXAMETHASONE
     Indication: PRODUCT USED FOR UNKNOWN INDICATION
     Dosage: 2 MG, BID
     Route: 065
  13. CIPROFLOXACIN. [Concomitant]
     Active Substance: CIPROFLOXACIN
     Indication: PRODUCT USED FOR UNKNOWN INDICATION
     Dosage: 600 MG, BID
     Route: 065
  14. ACYCLOVIR. [Concomitant]
     Active Substance: ACYCLOVIR
     Indication: PRODUCT USED FOR UNKNOWN INDICATION
     Dosage: 800 MG, QD
     Route: 065
  15. DIFLUCAN [Concomitant]
     Active Substance: FLUCONAZOLE
     Indication: PRODUCT USED FOR UNKNOWN INDICATION
     Dosage: 200 MG, QD
     Route: 065
  16. ABARAXIN [Concomitant]
     Indication: PRODUCT USED FOR UNKNOWN INDICATION
     Dosage: 75 MG/M2, QW
     Route: 065
     Dates: start: 20160215
  17. ABARAXIN [Concomitant]
     Dosage: 75 MG/M2, QW2 (CYCLE 9)
     Route: 065
     Dates: start: 20160321
  18. ONDANSETRON [Concomitant]
     Active Substance: ONDANSETRON
     Indication: PRODUCT USED FOR UNKNOWN INDICATION
     Dosage: UNK UNK, PRN
     Route: 065
  19. ABARAXIN [Concomitant]
     Dosage: 75 MG/M2, QW2 (CYCLE 7)
     Route: 065
     Dates: start: 20160314
  20. ABARAXIN [Concomitant]
     Dosage: 75 MG/M2, UNK
     Route: 065
     Dates: start: 20161025
  21. ZOFRAN [Suspect]
     Active Substance: ONDANSETRON HYDROCHLORIDE
     Indication: NAUSEA
     Dosage: 8 MG, PRN
     Route: 065
  22. ABARAXIN [Concomitant]
     Dosage: 75 MG/M2, QW
     Route: 065
     Dates: start: 20160222
  23. ABARAXIN [Concomitant]
     Dosage: 75 MG/M2, QW2 (CYCLE 8)
     Route: 065
     Dates: start: 20160317
  24. CISPLATIN. [Concomitant]
     Active Substance: CISPLATIN
     Dosage: UNK
     Route: 065
     Dates: start: 20160419
  25. CLARITIN [Concomitant]
     Active Substance: LORATADINE
     Indication: PRODUCT USED FOR UNKNOWN INDICATION
     Route: 065
  26. LANTUS [Concomitant]
     Active Substance: INSULIN GLARGINE
     Indication: TYPE 2 DIABETES MELLITUS
     Dosage: 50 U, QD (20 UNIT IN MORNING AND 30 UNIT IN EVENING)
     Route: 065
  27. PALBOCICLIB [Suspect]
     Active Substance: PALBOCICLIB
     Indication: PRODUCT USED FOR UNKNOWN INDICATION
     Dosage: UNK
     Route: 065
     Dates: start: 20160606, end: 20160626
  28. ABARAXIN [Concomitant]
     Dosage: 75 MG/M2, QW2 (CYCLE 5)
     Route: 065
     Dates: start: 20160307
  29. ABARAXIN [Concomitant]
     Dosage: 75 MG/M2, QW2 (CYCLE10)
     Route: 065
     Dates: start: 20160324
  30. CISPLATIN. [Concomitant]
     Active Substance: CISPLATIN
     Indication: PRODUCT USED FOR UNKNOWN INDICATION
     Dosage: UNK
     Route: 065
     Dates: start: 20160404
  31. PALBOCICLIB [Suspect]
     Active Substance: PALBOCICLIB
     Dosage: UNK
     Route: 065
     Dates: start: 20160726, end: 20160808
  32. ABARAXIN [Concomitant]
     Dosage: 75 MG/M2, QW (CYCLE 3)
     Route: 065
     Dates: start: 20160229
  33. CISPLATIN. [Concomitant]
     Active Substance: CISPLATIN
     Dosage: UNK
     Route: 065
     Dates: start: 20160623
  34. NORVASC [Concomitant]
     Active Substance: AMLODIPINE BESYLATE
     Indication: PRODUCT USED FOR UNKNOWN INDICATION
     Dosage: 2.6 MG, QD
     Route: 065
  35. PALBOCICLIB [Suspect]
     Active Substance: PALBOCICLIB
     Dosage: UNK
     Route: 065
     Dates: start: 20160705, end: 20160709
  36. 5 FU [Concomitant]
     Active Substance: FLUOROURACIL
     Indication: PRODUCT USED FOR UNKNOWN INDICATION
     Dosage: 2000 MG/M2, UNK
     Route: 065
     Dates: start: 20161003
  37. NEUPOGEN [Concomitant]
     Active Substance: FILGRASTIM
     Indication: PRODUCT USED FOR UNKNOWN INDICATION
     Route: 065
  38. METFORMIN [Concomitant]
     Active Substance: METFORMIN HYDROCHLORIDE
     Indication: TYPE 2 DIABETES MELLITUS
     Dosage: 1000 MG, BID
     Route: 065

REACTIONS (28)
  - Brain oedema [Recovered/Resolved]
  - Ear pain [Recovered/Resolved]
  - Alopecia [Unknown]
  - Neuropathy peripheral [Recovering/Resolving]
  - White blood cell count increased [Recovered/Resolved]
  - Abdominal distension [Unknown]
  - Headache [Unknown]
  - Oral pain [Unknown]
  - Syncope [Unknown]
  - Nausea [Recovering/Resolving]
  - Body temperature increased [Unknown]
  - Blood glucose increased [Unknown]
  - Platelet count decreased [Recovered/Resolved]
  - Malaise [Unknown]
  - Generalised oedema [Recovering/Resolving]
  - Dizziness [Recovered/Resolved]
  - Abdominal pain [Unknown]
  - Hypophagia [Unknown]
  - Hepatic lesion [Unknown]
  - Fatigue [Not Recovered/Not Resolved]
  - Dehydration [Unknown]
  - Headache [Recovered/Resolved]
  - Hypoaesthesia [Unknown]
  - Diarrhoea [Recovered/Resolved]
  - Skin discolouration [Unknown]
  - Pain in extremity [Recovering/Resolving]
  - Diarrhoea [Recovering/Resolving]
  - Osteoarthritis [Unknown]

NARRATIVE: CASE EVENT DATE: 20160510
